FAERS Safety Report 6251307-7 (Version None)
Quarter: 2009Q2

REPORT INFORMATION
  Report Type: 
  Country: None (occurrence: None)
  Receive Date: 20090630
  Receipt Date: 20090624
  Transmission Date: 20091009
  Serious: Yes (Other)
  Sender: FDA-Public Use
  Company Number: PHHY2009CA17723

PATIENT
  Sex: Female

DRUGS (2)
  1. ESTRADERM [Suspect]
     Dosage: 50 UG, UNK
     Route: 062
     Dates: start: 20090301, end: 20090401
  2. PROMETRIUM [Concomitant]

REACTIONS (4)
  - ANXIETY [None]
  - DRUG INEFFECTIVE [None]
  - HOT FLUSH [None]
  - PANIC ATTACK [None]
